FAERS Safety Report 13819919 (Version 1)
Quarter: 2017Q3

REPORT INFORMATION
  Report Type: Spontaneous
  Country: US (occurrence: US)
  Receive Date: 20170731
  Receipt Date: 20170731
  Transmission Date: 20171127
  Serious: Yes (Other)
  Sender: FDA-Public Use
  Company Number: US-BEH-2017082329

PATIENT
  Sex: Male
  Weight: 39.91 kg

DRUGS (17)
  1. DIPHENHYDRAMINE. [Concomitant]
     Active Substance: DIPHENHYDRAMINE
  2. METHYLCOBALAMIN. [Concomitant]
     Active Substance: METHYLCOBALAMIN
  3. PRIVIGEN [Suspect]
     Active Substance: HUMAN IMMUNOGLOBULIN G
     Dosage: UNK
     Route: 042
  4. IBUPROFEN. [Concomitant]
     Active Substance: IBUPROFEN
  5. LMX                                /00033401/ [Concomitant]
  6. EPINEPHRINE. [Concomitant]
     Active Substance: EPINEPHRINE
  7. ZYRTEC [Concomitant]
     Active Substance: CETIRIZINE HYDROCHLORIDE
  8. PRIVIGEN [Suspect]
     Active Substance: HUMAN IMMUNOGLOBULIN G
     Dosage: UNK
     Route: 042
  9. NORMAL SALINE [Concomitant]
     Active Substance: SODIUM CHLORIDE
  10. VALIUM [Concomitant]
     Active Substance: DIAZEPAM
  11. MELATONIN [Concomitant]
     Active Substance: MELATONIN
  12. PYRIDOXAL 5^ PHOSPHATE [Concomitant]
     Active Substance: PYRIDOXAL PHOSPHATE
  13. PRIVIGEN [Suspect]
     Active Substance: HUMAN IMMUNOGLOBULIN G
     Indication: HYPOGAMMAGLOBULINAEMIA
     Dosage: 35 G, AS DIRECTED
     Route: 042
     Dates: start: 20130916
  14. ACETAMINOPHEN. [Concomitant]
     Active Substance: ACETAMINOPHEN
  15. SODIUM CHLORIDE. [Concomitant]
     Active Substance: SODIUM CHLORIDE
  16. CONCERTA [Concomitant]
     Active Substance: METHYLPHENIDATE HYDROCHLORIDE
  17. NALTREXONE [Concomitant]
     Active Substance: NALTREXONE

REACTIONS (2)
  - Streptococcal infection [Unknown]
  - Skin exfoliation [Unknown]
